FAERS Safety Report 5108938-7 (Version None)
Quarter: 2006Q3

REPORT INFORMATION
  Report Type: 
  Country: None (occurrence: None)
  Receive Date: 20060915
  Receipt Date: 20060915
  Transmission Date: 20061208
  Serious: Yes (Other)
  Sender: FDA-Public Use
  Company Number: None

PATIENT
  Age: 29 Year
  Sex: Female
  Weight: 72.5755 kg

DRUGS (4)
  1. PALGIC 4 MG TABLET [Suspect]
     Indication: RHINITIS ALLERGIC
     Dosage: 4 MG BID PO
     Route: 048
     Dates: start: 20060406
  2. CLARITIN [Suspect]
     Indication: RHINITIS ALLERGIC
     Dosage: 10 MG QD PO
     Route: 048
     Dates: start: 20051006
  3. WELLBUTRIN [Concomitant]
  4. AMBIEN [Concomitant]

REACTIONS (1)
  - URTICARIA [None]
